FAERS Safety Report 12172433 (Version 1)
Quarter: 2016Q1

REPORT INFORMATION
  Report Type: Spontaneous
  Country: US (occurrence: US)
  Receive Date: 20160311
  Receipt Date: 20160311
  Transmission Date: 20160526
  Serious: No
  Sender: FDA-Public Use
  Company Number: US-SHIRE-US201602758

PATIENT
  Age: 33 Year
  Sex: Male

DRUGS (2)
  1. NATPARA (PARATHYROID HORMONE) [Suspect]
     Active Substance: PARATHYROID HORMONE
     Indication: HYPOPARATHYROIDISM
     Dosage: 50 ?G, UNK
     Route: 058
     Dates: start: 20150728
  2. NATPARA MIXING DEVICE [Suspect]
     Active Substance: DEVICE
     Indication: HYPOPARATHYROIDISM
     Dosage: 50 ?G, UNK
     Route: 058
     Dates: start: 20150728

REACTIONS (2)
  - Device malfunction [Unknown]
  - Blepharospasm [Recovered/Resolved with Sequelae]

NARRATIVE: CASE EVENT DATE: 20160301
